FAERS Safety Report 6110302-9 (Version None)
Quarter: 2009Q1

REPORT INFORMATION
  Report Type: 
  Country: None (occurrence: None)
  Receive Date: 20090310
  Receipt Date: 20090226
  Transmission Date: 20090719
  Serious: Yes (Other)
  Sender: FDA-Public Use
  Company Number: GB-PFIZER INC-2009167636

PATIENT

DRUGS (2)
  1. SOMAVERT [Suspect]
     Indication: ACROMEGALY
     Dosage: 20 MG, 1X/DAY
     Dates: start: 20080101
  2. SANDOSTATIN LAR [Concomitant]
     Dosage: 30 MG, MONTHLY
     Route: 030
     Dates: start: 20070101

REACTIONS (5)
  - CONDITION AGGRAVATED [None]
  - GOITRE [None]
  - INSULIN-LIKE GROWTH FACTOR INCREASED [None]
  - SENSATION OF PRESSURE [None]
  - TRACHEAL DISORDER [None]
